FAERS Safety Report 5761872-1 (Version None)
Quarter: 2008Q2

REPORT INFORMATION
  Report Type: 
  Country: None (occurrence: None)
  Receive Date: 20080606
  Receipt Date: 20080526
  Transmission Date: 20081010
  Serious: Yes (Hospitalization, Disabling)
  Sender: FDA-Public Use
  Company Number: BR-PFIZER INC-2008046053

PATIENT
  Sex: Female
  Weight: 67 kg

DRUGS (7)
  1. CHANTIX [Suspect]
     Indication: SMOKING CESSATION THERAPY
     Route: 048
  2. GLIOTEN [Concomitant]
  3. ALL OTHER THERAPEUTIC PRODUCTS [Concomitant]
  4. SOMALGIN [Concomitant]
  5. SUSTRATE [Concomitant]
  6. CLOPIDOGREL [Concomitant]
  7. CITALOPRAM HYDROBROMIDE [Concomitant]
     Dates: start: 20080114, end: 20080501

REACTIONS (6)
  - ASTHENIA [None]
  - MALAISE [None]
  - MUTISM [None]
  - NAUSEA [None]
  - OEDEMA PERIPHERAL [None]
  - SWELLING FACE [None]
